FAERS Safety Report 20872634 (Version 5)
Quarter: 2023Q2

REPORT INFORMATION
  Report Type: Spontaneous
  Country: US (occurrence: US)
  Receive Date: 20220525
  Receipt Date: 20230607
  Transmission Date: 20230722
  Serious: Yes (Other)
  Sender: FDA-Public Use
  Company Number: US-PFIZER INC-202200750467

PATIENT
  Age: 82 Year
  Sex: Female
  Weight: 58.97 kg

DRUGS (6)
  1. PREMARIN [Suspect]
     Active Substance: ESTROGENS, CONJUGATED
     Indication: Hysterectomy
     Dosage: 0.625 MG, 1X/DAY
     Dates: start: 1982
  2. PREMARIN [Suspect]
     Active Substance: ESTROGENS, CONJUGATED
     Indication: Hormone replacement therapy
     Dosage: 0.625 MG
     Route: 048
     Dates: end: 202206
  3. DEPO-ESTRADIOL [Suspect]
     Active Substance: ESTRADIOL CYPIONATE
     Dosage: 1 MG
  4. DEPO-ESTRADIOL [Suspect]
     Active Substance: ESTRADIOL CYPIONATE
     Dosage: 1 MG, 1X/DAY
     Route: 048
     Dates: start: 20220611
  5. LEVOXYL [Concomitant]
     Active Substance: LEVOTHYROXINE SODIUM
     Indication: Hypothyroidism
     Dosage: 50 UG, CYCLIC (50MCG, TWO ON MONDAY, WEDNESDAY AND FRIDAY AND ONE THE REST OF THE DAYS)
     Route: 048
  6. ASPIRIN [Concomitant]
     Active Substance: ASPIRIN
     Dosage: 81 MG, 1X/DAY (TAKING ON AND OFF FOR YEARS AND THEN AFTER TIAS, TOLD HER TO TAKE IT EVERY DAY)
     Route: 048

REACTIONS (9)
  - Transient ischaemic attack [Not Recovered/Not Resolved]
  - Uterine disorder [Unknown]
  - Feeling drunk [Unknown]
  - Dizziness [Unknown]
  - Nausea [Unknown]
  - Headache [Unknown]
  - Hyperhidrosis [Unknown]
  - Hot flush [Unknown]
  - Body height decreased [Unknown]

NARRATIVE: CASE EVENT DATE: 20220401
